FAERS Safety Report 23846453 (Version 1)
Quarter: 2024Q2

REPORT INFORMATION
  Report Type: Spontaneous
  Country: BR (occurrence: BR)
  Receive Date: 20240513
  Receipt Date: 20240513
  Transmission Date: 20240715
  Serious: Yes (Other)
  Sender: FDA-Public Use
  Company Number: BR-BRISTOL-MYERS SQUIBB COMPANY-2024-070826

PATIENT
  Age: 54 Year
  Sex: Female
  Weight: 80 kg

DRUGS (2)
  1. SPRYCEL [Suspect]
     Active Substance: DASATINIB
     Indication: Chronic myeloid leukaemia
     Dosage: DOSE : 1 TABLET A DAY;     FREQ : 1 TABLET A DAY
     Dates: start: 202311, end: 202404
  2. SPRYCEL [Suspect]
     Active Substance: DASATINIB
     Dosage: DOSE : 1 TABLET A DAY;     FREQ : 1 TABLET A DAY

REACTIONS (1)
  - Dengue fever [Unknown]

NARRATIVE: CASE EVENT DATE: 20240401
